FAERS Safety Report 20981792 (Version 2)
Quarter: 2022Q2

REPORT INFORMATION
  Report Type: Report from Study
  Country: CN (occurrence: None)
  Receive Date: 20220620
  Receipt Date: 20220629
  Transmission Date: 20220720
  Serious: Yes (Hospitalization)
  Sender: FDA-Public Use
  Company Number: CN-ROCHE-3117607

PATIENT
  Age: 62 Year
  Sex: Male
  Weight: 74.2 kg

DRUGS (12)
  1. PLACEBO [Suspect]
     Active Substance: UNSPECIFIED INGREDIENT
     Indication: Non-small cell lung cancer stage IV
     Dosage: ON 26/MAY/2022, RECEIVED MOST RECENT DOSE OF STUDY DRUG PRIOR TO AE AND SAE
     Route: 041
     Dates: start: 20220123
  2. BEVACIZUMAB [Suspect]
     Active Substance: BEVACIZUMAB
     Indication: Non-small cell lung cancer stage IV
     Dosage: DOSE LAST STUDY DRUG ADMIN PRIOR SAE AND AE: 1224 MG?START DATE OF MOST RECENT DOSE OF STUDY DRUG PR
     Route: 042
     Dates: start: 20220123
  3. CARBOPLATIN [Suspect]
     Active Substance: CARBOPLATIN
     Indication: Non-small cell lung cancer stage IV
     Dosage: MOST RECENT DOSE 710 MG PRIOR TO AE/SAE: 16/APR/2022
     Route: 042
     Dates: start: 20220123
  4. PEMETREXED [Suspect]
     Active Substance: PEMETREXED
     Indication: Non-small cell lung cancer stage IV
     Dosage: MOST RECENT DOSE 890 MG PRIOR TO AE/SAE: 26/MAY/2022
     Route: 042
     Dates: start: 20220123
  5. FOLIC ACID [Concomitant]
     Active Substance: FOLIC ACID
     Dates: start: 20220111
  6. ERTUGLIFLOZIN [Concomitant]
     Active Substance: ERTUGLIFLOZIN
     Indication: Hypoglycaemia
     Dates: start: 20220219
  7. VOGLIBOSE [Concomitant]
     Active Substance: VOGLIBOSE
     Indication: Hypoglycaemia
     Dates: start: 20220219
  8. METFORMIN HYDROCHLORIDE [Concomitant]
     Active Substance: METFORMIN HYDROCHLORIDE
     Indication: Hypoglycaemia
     Dates: start: 20220417
  9. GLUTATHIONE REDUCED [Concomitant]
     Dates: start: 20220507, end: 20220518
  10. DEXAMETHASONE [Concomitant]
     Active Substance: DEXAMETHASONE
     Route: 048
     Dates: start: 20220506, end: 20220508
  11. POLAPREZINC [Concomitant]
     Active Substance: POLAPREZINC
     Dates: start: 20220506, end: 20220510
  12. DIAZEPAM [Concomitant]
     Active Substance: DIAZEPAM
     Route: 042
     Dates: start: 20220613, end: 20220613

REACTIONS (1)
  - Arterial haemorrhage [Recovering/Resolving]

NARRATIVE: CASE EVENT DATE: 20220606
